FAERS Safety Report 17462304 (Version 1)
Quarter: 2020Q1

REPORT INFORMATION
  Report Type: Spontaneous
  Country: US (occurrence: US)
  Receive Date: 20200226
  Receipt Date: 20200226
  Transmission Date: 20200409
  Serious: Yes (Other)
  Sender: FDA-Public Use
  Company Number: US-NEOS THERAPEUTICS, LP-2019NEO00017

PATIENT
  Age: 8 Year
  Sex: Male

DRUGS (3)
  1. ADZENYS XR-ODT [Suspect]
     Active Substance: AMPHETAMINE
     Dosage: 6.3 MG, 1X/DAY
     Route: 048
     Dates: start: 20181213, end: 20190301
  2. ADZENYS XR-ODT [Suspect]
     Active Substance: AMPHETAMINE
     Dosage: 9.4 MG, 1X/DAY
     Dates: start: 20190301, end: 201903
  3. L-METHYLFOLATE [Suspect]
     Active Substance: LEVOMEFOLIC ACID
     Dosage: UNK
     Dates: end: 201903

REACTIONS (1)
  - Serotonin syndrome [Recovered/Resolved]

NARRATIVE: CASE EVENT DATE: 201903
